FAERS Safety Report 7726041-4 (Version None)
Quarter: 2011Q3

REPORT INFORMATION
  Report Type: 
  Country: None (occurrence: None)
  Receive Date: 20110902
  Receipt Date: 20110830
  Transmission Date: 20111222
  Serious: Yes (Death, Hospitalization)
  Sender: FDA-Public Use
  Company Number: US-GILEAD-2011-0042829

PATIENT
  Sex: Female

DRUGS (1)
  1. LETAIRIS [Suspect]
     Indication: PULMONARY HYPERTENSION
     Route: 048
     Dates: start: 20090901, end: 20110701

REACTIONS (4)
  - OEDEMA PERIPHERAL [None]
  - HYPOXIA [None]
  - RESPIRATORY ARREST [None]
  - DYSPNOEA [None]
